FAERS Safety Report 12253141 (Version 1)
Quarter: 2016Q2

REPORT INFORMATION
  Report Type: Spontaneous
  Country: US (occurrence: None)
  Receive Date: 20160408
  Receipt Date: 20160408
  Transmission Date: 20160815
  Serious: No
  Sender: FDA-Public Use
  Company Number: None

PATIENT
  Age: 63 Year
  Sex: Female
  Weight: 62.6 kg

DRUGS (9)
  1. NORVAC [Concomitant]
     Active Substance: AMLODIPINE BESYLATE
  2. OPANA IR [Concomitant]
  3. HARVONI [Suspect]
     Active Substance: LEDIPASVIR\SOFOSBUVIR
     Indication: HEPATITIS C
     Dosage: 90-400 MG, 30
     Route: 048
     Dates: start: 20160328, end: 20160404
  4. HARVONI [Suspect]
     Active Substance: LEDIPASVIR\SOFOSBUVIR
     Indication: CONFUSIONAL STATE
     Dosage: 90-400 MG, 30
     Route: 048
     Dates: start: 20160328, end: 20160404
  5. VAGATEM [Concomitant]
  6. MULTIVITAMIN [Concomitant]
     Active Substance: VITAMINS
  7. VITAMIN D [Concomitant]
     Active Substance: CHOLECALCIFEROL
  8. OPANA ER [Concomitant]
     Active Substance: OXYMORPHONE HYDROCHLORIDE
  9. VALIUM [Concomitant]
     Active Substance: DIAZEPAM

REACTIONS (15)
  - Amnesia [None]
  - Blood pressure increased [None]
  - Photophobia [None]
  - Arrhythmia [None]
  - Depression [None]
  - Vision blurred [None]
  - Anger [None]
  - Laboratory test abnormal [None]
  - Emotional disorder [None]
  - Serum serotonin increased [None]
  - Confusional state [None]
  - Extrasystoles [None]
  - Tachycardia [None]
  - Musculoskeletal stiffness [None]
  - Refusal of treatment by patient [None]

NARRATIVE: CASE EVENT DATE: 20160331
